FAERS Safety Report 9729182 (Version 1)
Quarter: 2013Q4

REPORT INFORMATION
  Report Type: Spontaneous
  Country: US (occurrence: US)
  Receive Date: 20131204
  Receipt Date: 20131204
  Transmission Date: 20140711
  Serious: Yes (Other)
  Sender: FDA-Public Use
  Company Number: US-BAYER-2013-147289

PATIENT
  Age: 45 Year
  Sex: Female

DRUGS (4)
  1. YASMIN [Suspect]
  2. PREDNISONE [Concomitant]
     Dosage: 10 MG, UNK, LONG TERM USE
  3. METHOTREXATE [Concomitant]
     Dosage: 2.5 MG, UNK, LONG TERM USE
  4. ATENOLOL [Concomitant]
     Dosage: 25 MG, UNK, LONG TERM USE

REACTIONS (1)
  - Deep vein thrombosis [Recovered/Resolved]
